FAERS Safety Report 6450359-9 (Version None)
Quarter: 2009Q4

REPORT INFORMATION
  Report Type: 
  Country: None (occurrence: None)
  Receive Date: 20091123
  Receipt Date: 20091119
  Transmission Date: 20100525
  Serious: Yes (Other)
  Sender: FDA-Public Use
  Company Number: BR-ROCHE-669761

PATIENT
  Sex: Female
  Weight: 38 kg

DRUGS (1)
  1. RIVOTRIL [Suspect]
     Route: 048
     Dates: start: 20061201, end: 20091112

REACTIONS (1)
  - ABORTION MISSED [None]
